FAERS Safety Report 16096309 (Version 2)
Quarter: 2019Q3

REPORT INFORMATION
  Report Type: Spontaneous
  Country: US (occurrence: US)
  Receive Date: 20190320
  Receipt Date: 20190930
  Transmission Date: 20191004
  Serious: No
  Sender: FDA-Public Use
  Company Number: US-MYLANLABS-2019M1024414

PATIENT
  Age: 44 Year
  Sex: Female

DRUGS (1)
  1. ESTRADIOL MYLAN [Suspect]
     Active Substance: ESTRADIOL
     Indication: PRODUCT USED FOR UNKNOWN INDICATION
     Dosage: UNK
     Dates: start: 201810, end: 201901

REACTIONS (3)
  - Hot flush [Unknown]
  - Malaise [Unknown]
  - Headache [Unknown]
